FAERS Safety Report 14133881 (Version 5)
Quarter: 2018Q3

REPORT INFORMATION
  Report Type: Spontaneous
  Country: US (occurrence: US)
  Receive Date: 20171027
  Receipt Date: 20180822
  Transmission Date: 20181010
  Serious: Yes (Hospitalization, Other)
  Sender: FDA-Public Use
  Company Number: US-PFIZER INC-2017461361

PATIENT
  Age: 49 Year
  Sex: Female
  Weight: 49.9 kg

DRUGS (3)
  1. XELJANZ XR [Suspect]
     Active Substance: TOFACITINIB CITRATE
     Indication: RHEUMATOID ARTHRITIS
     Dosage: 11 MG, DAILY
     Route: 048
     Dates: start: 20170822
  2. ARMOUR THYROID [Concomitant]
     Active Substance: THYROID, PORCINE
     Indication: HYPOTHYROIDISM
     Dosage: UNK, SINGLE (67, ONCE)
     Route: 048
  3. ARMOUR THYROID [Concomitant]
     Active Substance: THYROID, PORCINE
     Dosage: 67 MG, UNK
     Route: 048
     Dates: start: 1996

REACTIONS (13)
  - Gallbladder hypofunction [Unknown]
  - Abdominal pain [Unknown]
  - Lymph node pain [Unknown]
  - Subcutaneous abscess [Recovered/Resolved]
  - Lymphadenopathy [Unknown]
  - Acne cystic [Recovered/Resolved]
  - Pain in jaw [Recovered/Resolved]
  - Disease recurrence [Recovered/Resolved]
  - Cholelithiasis [Unknown]
  - Hepatic enzyme increased [Unknown]
  - Condition aggravated [Recovered/Resolved]
  - Liver disorder [Recovered/Resolved]
  - Furuncle [Unknown]

NARRATIVE: CASE EVENT DATE: 20170913
